FAERS Safety Report 16612114 (Version 1)
Quarter: 2019Q3

REPORT INFORMATION
  Report Type: Spontaneous
  Country: FR (occurrence: FR)
  Receive Date: 20190722
  Receipt Date: 20190722
  Transmission Date: 20191004
  Serious: Yes (Congenital Anomaly)
  Sender: FDA-Public Use
  Company Number: PHHY2019FR164694

PATIENT
  Age: 3 Day
  Sex: Male
  Weight: 3.43 kg

DRUGS (7)
  1. PLAQUENIL [Suspect]
     Active Substance: HYDROXYCHLOROQUINE SULFATE
     Indication: FOETAL EXPOSURE DURING PREGNANCY
     Dosage: MATERNAL DOSE: 400 MG, QD
     Route: 064
     Dates: start: 20170622
  2. RITUXIMAB. [Suspect]
     Active Substance: RITUXIMAB
     Indication: FOETAL EXPOSURE DURING PREGNANCY
     Dosage: MATERNAL DOSE: UNKNOWN
     Route: 064
  3. NEORAL [Suspect]
     Active Substance: CYCLOSPORINE
     Indication: FOETAL EXPOSURE DURING PREGNANCY
     Dosage: MATERNAL DOSE: 300 MG, QD
     Route: 064
     Dates: start: 20171022
  4. PLAQUENIL [Suspect]
     Active Substance: HYDROXYCHLOROQUINE SULFATE
     Dosage: MATERNAL DOSE: 400 MG, QD
     Route: 064
     Dates: start: 20180629
  5. ASPIRINE [Suspect]
     Active Substance: ASPIRIN
     Indication: FOETAL EXPOSURE DURING PREGNANCY
     Dosage: MATERNAL DOSE: 100 MG, QD
     Route: 064
     Dates: start: 20171022
  6. NEORAL [Suspect]
     Active Substance: CYCLOSPORINE
     Dosage: MATERNAL DOSE: 300 MG, QD
     Route: 064
     Dates: start: 20180629
  7. ASPIRINE [Suspect]
     Active Substance: ASPIRIN
     Dosage: MATERNAL DOSE: 100 MG, QD
     Route: 064
     Dates: start: 20180629

REACTIONS (3)
  - Blood immunoglobulin M decreased [Unknown]
  - Blood immunoglobulin A decreased [Unknown]
  - Monoclonal B-cell lymphocytosis [Unknown]

NARRATIVE: CASE EVENT DATE: 20180702
